FAERS Safety Report 6982024-3 (Version None)
Quarter: 2010Q3

REPORT INFORMATION
  Report Type: 
  Country: None (occurrence: None)
  Receive Date: 20100914
  Receipt Date: 20091124
  Transmission Date: 20110219
  Serious: No
  Sender: FDA-Public Use
  Company Number: US-PFIZER INC-2009286573

PATIENT
  Sex: Female
  Weight: 73.9 kg

DRUGS (9)
  1. LYRICA [Suspect]
     Indication: NEUROPATHY PERIPHERAL
     Dosage: 75 MG, 1X/DAY
     Route: 048
     Dates: start: 20090917
  2. CRESTOR [Concomitant]
     Indication: OSTEOARTHRITIS
     Dosage: UNK
     Route: 048
  3. TYLENOL [Concomitant]
     Indication: OSTEOARTHRITIS
     Dosage: UNK
     Route: 048
  4. BETIMOL [Concomitant]
     Indication: GLAUCOMA
     Dosage: UNK
  5. DIOVAN HCT [Concomitant]
     Indication: HYPERTENSION
     Dosage: UNK
     Route: 048
  6. NORVASC [Concomitant]
     Indication: HYPERTENSION
     Dosage: 5 MG, 1X/DAY
     Route: 048
  7. SIMVASTATIN [Concomitant]
     Indication: BLOOD CHOLESTEROL INCREASED
     Dosage: 80 MG, UNK
     Route: 048
  8. ACETYLSALICYLIC ACID [Concomitant]
     Dosage: 81 MG, UNK
     Route: 048
  9. VITAMIN B COMPLEX CAP [Concomitant]
     Dosage: UNK
     Route: 048

REACTIONS (1)
  - WEIGHT INCREASED [None]
